FAERS Safety Report 6533692-1 (Version None)
Quarter: 2010Q1

REPORT INFORMATION
  Report Type: 
  Country: None (occurrence: None)
  Receive Date: 20100108
  Receipt Date: 20100108
  Transmission Date: 20100710
  Serious: Yes (Other)
  Sender: FDA-Public Use
  Company Number: None

PATIENT
  Sex: Female
  Weight: 57.6068 kg

DRUGS (4)
  1. GEODON [Suspect]
     Indication: DEPRESSION
     Dosage: 160 MG Q 2000 PO
     Route: 048
     Dates: start: 20091219, end: 20091225
  2. GEODON [Suspect]
     Indication: SUICIDAL IDEATION
     Dosage: 160 MG Q 2000 PO
     Route: 048
     Dates: start: 20091219, end: 20091225
  3. GEODON [Suspect]
     Indication: DEPRESSION
     Dosage: 60 MG  Q 0900 PO
     Route: 048
     Dates: start: 20091210, end: 20091225
  4. GEODON [Suspect]
     Indication: SUICIDAL IDEATION
     Dosage: 60 MG  Q 0900 PO
     Route: 048
     Dates: start: 20091210, end: 20091225

REACTIONS (3)
  - DIZZINESS [None]
  - MYDRIASIS [None]
  - VISION BLURRED [None]
